FAERS Safety Report 24912773 (Version 3)
Quarter: 2025Q1

REPORT INFORMATION
  Report Type: Spontaneous
  Country: AU (occurrence: AU)
  Receive Date: 20250131
  Receipt Date: 20250323
  Transmission Date: 20250408
  Serious: Yes (Death, Life-Threatening, Other)
  Sender: BEIGENE
  Company Number: AU-BEIGENE-BGN-2025-001248

PATIENT
  Age: 77 Year

DRUGS (11)
  1. BRUKINSA [Suspect]
     Active Substance: ZANUBRUTINIB
     Indication: Waldenstrom^s macroglobulinaemia
     Dosage: 160 MILLIGRAM, BID
  2. AMLODIPINE [Concomitant]
     Active Substance: AMLODIPINE BESYLATE
  3. DOCUSATE [Concomitant]
     Active Substance: DOCUSATE
     Dosage: 100 MILLIGRAM, BID
  4. DOMPERIDONE [Concomitant]
     Active Substance: DOMPERIDONE
  5. ESOMEPRAZOLE [Concomitant]
     Active Substance: ESOMEPRAZOLE
  6. FOSINOPRIL [Concomitant]
     Active Substance: FOSINOPRIL
  7. FUROSEMIDE [Concomitant]
     Active Substance: FUROSEMIDE
  8. THIAMINE [Concomitant]
     Active Substance: THIAMINE
  9. BACTRIM [Concomitant]
     Active Substance: SULFAMETHOXAZOLE\TRIMETHOPRIM
  10. VALACYCLOVIR HYDROCHLORIDE [Concomitant]
     Active Substance: VALACYCLOVIR HYDROCHLORIDE
  11. VENLAFAXINE [Concomitant]
     Active Substance: VENLAFAXINE HYDROCHLORIDE

REACTIONS (4)
  - Pericardial effusion [Fatal]
  - End stage renal disease [Fatal]
  - Pericarditis uraemic [Fatal]
  - Cardiac tamponade [Unknown]
